FAERS Safety Report 25832597 (Version 1)
Quarter: 2025Q3

REPORT INFORMATION
  Report Type: Spontaneous
  Country: US (occurrence: None)
  Receive Date: 20250920
  Receipt Date: 20250920
  Transmission Date: 20251020
  Serious: Yes (Hospitalization)
  Sender: FDA-CTU
  Company Number: None

PATIENT
  Age: 63 Year
  Sex: Male
  Weight: 120.11 kg

DRUGS (8)
  1. CYCLOPHOSPHAMIDE [Suspect]
     Active Substance: CYCLOPHOSPHAMIDE
     Dates: end: 20250109
  2. CYTARABINE [Suspect]
     Active Substance: CYTARABINE
     Dates: end: 20250207
  3. SPRYCEL [Suspect]
     Active Substance: DASATINIB
     Dates: end: 20250908
  4. DEXAMETHASONE [Suspect]
     Active Substance: DEXAMETHASONE
     Dates: end: 20250110
  5. DOXORUBICIN HYDROCHLORIDE [Suspect]
     Active Substance: DOXORUBICIN HYDROCHLORIDE
  6. METHOTREXATE [Suspect]
     Active Substance: METHOTREXATE
     Dates: end: 20250807
  7. PREDNISONE [Suspect]
     Active Substance: PREDNISONE
     Dates: start: 20250908
  8. VINCRISTINE SULFATE [Suspect]
     Active Substance: VINCRISTINE SULFATE
     Dates: end: 20250904

REACTIONS (6)
  - Atrial fibrillation [None]
  - Dyspnoea [None]
  - Leukopenia [None]
  - Lactic acidosis [None]
  - Hyperglycaemia [None]
  - Syncope [None]

NARRATIVE: CASE EVENT DATE: 20250908
